FAERS Safety Report 8174991-X (Version None)
Quarter: 2012Q1

REPORT INFORMATION
  Report Type: 
  Country: None (occurrence: None)
  Receive Date: 20120229
  Receipt Date: 20120220
  Transmission Date: 20120608
  Serious: Yes (Hospitalization, Other)
  Sender: FDA-Public Use
  Company Number: PHHY2012BG016834

PATIENT
  Age: 78 Year
  Sex: Male

DRUGS (1)
  1. ZOMETA [Suspect]
     Indication: PROSTATE CANCER METASTATIC
     Dosage: 4 MG, QMO

REACTIONS (8)
  - GINGIVAL SWELLING [None]
  - OSTEONECROSIS OF JAW [None]
  - IMPAIRED HEALING [None]
  - BONE DEFORMITY [None]
  - EXPOSED BONE IN JAW [None]
  - MUCOSAL INFLAMMATION [None]
  - PURULENT DISCHARGE [None]
  - PAIN IN JAW [None]
